FAERS Safety Report 7053312-X (Version None)
Quarter: 2010Q4

REPORT INFORMATION
  Report Type: 
  Country: None (occurrence: None)
  Receive Date: 20101020
  Receipt Date: 20101007
  Transmission Date: 20110411
  Serious: Yes (Hospitalization)
  Sender: FDA-Public Use
  Company Number: PHHY2010BR67555

PATIENT
  Sex: Female

DRUGS (8)
  1. ACLASTA [Suspect]
     Dosage: 5MG/100ML, ONE APPLICATION IN THE LEFT ARM.
     Route: 042
     Dates: start: 20090710
  2. ARTROLIVE [Concomitant]
     Indication: OSTEOARTHRITIS
     Dosage: 500MG/400MG, 1 TABLET TWICE PER DAY
     Route: 048
  3. ISOFLAVONE [Concomitant]
     Dosage: 50MG, 1 TABLET TWICE PER DAY (MORNING AND AFTERNOON)
     Route: 048
  4. OS-CAL [Concomitant]
     Dosage: 1 TABLET/DAY
     Route: 048
  5. ALIGINAC [Concomitant]
     Indication: OSTEOARTHRITIS
     Dosage: 1000 MG, 1 OR 2 TABLETS PER DAY
     Route: 048
     Dates: start: 20100501
  6. ALIGINAC [Concomitant]
     Indication: OSTEOPOROSIS
  7. PROFLAM [Concomitant]
     Indication: OSTEOARTHRITIS
     Dosage: 100MG, 1 OR 2 TABLETS PER DAY
     Route: 048
     Dates: start: 20100501
  8. PROFLAM [Concomitant]
     Indication: OSTEOPOROSIS

REACTIONS (3)
  - ARTHRALGIA [None]
  - KNEE OPERATION [None]
  - PAIN [None]
